FAERS Safety Report 6669359-9 (Version None)
Quarter: 2010Q2

REPORT INFORMATION
  Report Type: 
  Country: None (occurrence: None)
  Receive Date: 20100406
  Receipt Date: 20100405
  Transmission Date: 20101027
  Serious: Yes (Hospitalization, Other)
  Sender: FDA-Public Use
  Company Number: A0851145A

PATIENT
  Age: 50 Year
  Sex: Male

DRUGS (3)
  1. LAMICTAL CD [Suspect]
     Indication: BIPOLAR DISORDER
     Dosage: 25MG PER DAY
     Route: 048
  2. LEXAPRO [Concomitant]
  3. XANAX [Concomitant]

REACTIONS (3)
  - ARTHRALGIA [None]
  - PYREXIA [None]
  - RASH [None]
